FAERS Safety Report 6948728-3 (Version None)
Quarter: 2010Q3

REPORT INFORMATION
  Report Type: 
  Country: None (occurrence: None)
  Receive Date: 20100828
  Receipt Date: 20091110
  Transmission Date: 20110219
  Serious: No
  Sender: FDA-Public Use
  Company Number: US-ABBOTT-09P-163-0608326-00

PATIENT
  Age: 50 Year
  Sex: Female

DRUGS (4)
  1. NIASPAN [Suspect]
     Indication: BLOOD TRIGLYCERIDES INCREASED
     Route: 048
     Dates: start: 20091106, end: 20091106
  2. AMBIEN [Concomitant]
     Indication: PRODUCT USED FOR UNKNOWN INDICATION
     Route: 048
  3. ASPIRIN [Concomitant]
     Indication: FLUSHING
     Route: 048
     Dates: start: 20091106
  4. ASPIRIN [Concomitant]
     Indication: PROPHYLAXIS

REACTIONS (4)
  - FLUSHING [None]
  - HEADACHE [None]
  - PARAESTHESIA [None]
  - PRURITUS [None]
